FAERS Safety Report 6544449-X (Version None)
Quarter: 2010Q1

REPORT INFORMATION
  Report Type: 
  Country: None (occurrence: None)
  Receive Date: 20100120
  Receipt Date: 20100120
  Transmission Date: 20100710
  Serious: Yes (Hospitalization)
  Sender: FDA-Public Use
  Company Number: None

PATIENT
  Sex: Female
  Weight: 52.1637 kg

DRUGS (8)
  1. COUMADIN [Suspect]
     Indication: PROPHYLAXIS
     Dosage: 2 MG PO DAILY
     Route: 048
     Dates: start: 20091223, end: 20100117
  2. SUTENT [Suspect]
     Indication: BLADDER CANCER
     Dosage: 25 MG PO DAILY
     Route: 048
     Dates: start: 20091223, end: 20100119
  3. IBUPROFEN [Concomitant]
  4. PROCHLORPERAZINE MALEATE [Concomitant]
  5. CRESTOR [Concomitant]
  6. ATENOLOL [Concomitant]
  7. COLACE [Concomitant]
  8. OXYCODONE [Concomitant]

REACTIONS (9)
  - BACK PAIN [None]
  - CHILLS [None]
  - HAEMOGLOBIN DECREASED [None]
  - HAEMORRHAGE [None]
  - HYPOTENSION [None]
  - INTERNATIONAL NORMALISED RATIO INCREASED [None]
  - SUPRAPUBIC PAIN [None]
  - TACHYCARDIA [None]
  - URETHRAL HAEMORRHAGE [None]
